FAERS Safety Report 22609655 (Version 1)
Quarter: 2023Q2

REPORT INFORMATION
  Report Type: Spontaneous
  Country: US (occurrence: US)
  Receive Date: 20230616
  Receipt Date: 20230616
  Transmission Date: 20230722
  Serious: No
  Sender: FDA-Public Use
  Company Number: US-BEH-2023159728

PATIENT
  Sex: Male

DRUGS (4)
  1. IDELVION [Suspect]
     Active Substance: COAGULATION FACTOR IX RECOMBINANT HUMAN
     Indication: Factor IX deficiency
     Dosage: 3500 INTERNATIONAL UNIT, QOW
     Route: 042
     Dates: start: 201208
  2. IDELVION [Suspect]
     Active Substance: COAGULATION FACTOR IX RECOMBINANT HUMAN
     Indication: Factor IX deficiency
     Dosage: 3500 INTERNATIONAL UNIT, QOW
     Route: 042
     Dates: start: 201208
  3. IDELVION [Suspect]
     Active Substance: COAGULATION FACTOR IX RECOMBINANT HUMAN
     Dosage: 1900 INTERNATIONAL UNIT, QOW
     Route: 042
     Dates: start: 201208
  4. IDELVION [Suspect]
     Active Substance: COAGULATION FACTOR IX RECOMBINANT HUMAN
     Dosage: 1900 INTERNATIONAL UNIT, QOW
     Route: 042
     Dates: start: 201208

REACTIONS (2)
  - Traumatic haemorrhage [Recovered/Resolved]
  - Limb injury [Unknown]
